FAERS Safety Report 8324924-8 (Version None)
Quarter: 2012Q2

REPORT INFORMATION
  Report Type: 
  Country: None (occurrence: None)
  Receive Date: 20120501
  Receipt Date: 20120416
  Transmission Date: 20120825
  Serious: Yes (Death, Hospitalization, Other)
  Sender: FDA-Public Use
  Company Number: NL-ASTELLAS-2012US001844

PATIENT
  Age: 79 Year
  Sex: Male

DRUGS (9)
  1. METOPROLOL SUCCINATE [Concomitant]
     Indication: PRODUCT USED FOR UNKNOWN INDICATION
     Dosage: 50 MG, UID/QD
     Route: 065
  2. TARCEVA [Suspect]
     Indication: NON-SMALL CELL LUNG CANCER STAGE IIIB
     Dosage: 150 MG, UID/QD
     Route: 048
  3. CLOPIDOGREL [Concomitant]
     Indication: PRODUCT USED FOR UNKNOWN INDICATION
     Dosage: 300 MG, X1, OTHER
     Route: 065
  4. CLOPIDOGREL [Concomitant]
     Dosage: 75 MG, UID/QD
  5. NADROPARIN [Concomitant]
     Indication: PRODUCT USED FOR UNKNOWN INDICATION
     Dosage: UNK
     Route: 065
  6. CIPROFLOXACIN [Suspect]
     Indication: BRONCHOPNEUMONIA
     Dosage: 500 MG, BID
     Route: 065
  7. CARBASALATE CALCIUM [Concomitant]
     Dosage: 80 MG, UID/QD
     Route: 065
  8. SIMVASTATIN [Concomitant]
     Indication: PRODUCT USED FOR UNKNOWN INDICATION
     Dosage: 40 MG, UID/QD
     Route: 065
  9. CARBASALATE CALCIUM [Concomitant]
     Indication: PRODUCT USED FOR UNKNOWN INDICATION
     Dosage: 300 MG, X1, OTHER
     Route: 065

REACTIONS (10)
  - CARDIAC FAILURE [None]
  - DRUG LEVEL INCREASED [None]
  - MYOCARDIAL INFARCTION [None]
  - PLEURAL EFFUSION [None]
  - CYTOMEGALOVIRUS INFECTION [None]
  - INTERSTITIAL LUNG DISEASE [None]
  - DRUG INTERACTION [None]
  - BRONCHOPNEUMONIA [None]
  - RASH [None]
  - RESPIRATORY FAILURE [None]
